FAERS Safety Report 11558306 (Version 1)
Quarter: 2015Q3

REPORT INFORMATION
  Report Type: Report from Study
  Country: FR (occurrence: FR)
  Receive Date: 20150928
  Receipt Date: 20150928
  Transmission Date: 20151125
  Serious: Yes (Life-Threatening, Other)
  Sender: FDA-Public Use
  Company Number: FR-ROCHE-1636753

PATIENT

DRUGS (2)
  1. BEVACIZUMAB [Suspect]
     Active Substance: BEVACIZUMAB
     Indication: ANGIOSARCOMA METASTATIC
     Route: 065
  2. PACLITAXEL. [Suspect]
     Active Substance: PACLITAXEL
     Indication: ANGIOSARCOMA METASTATIC
     Route: 042

REACTIONS (9)
  - Anaemia [Unknown]
  - Diarrhoea [Unknown]
  - Proteinuria [Unknown]
  - Haemorrhage [Unknown]
  - Haematoma [Unknown]
  - Pulmonary embolism [Unknown]
  - Neutropenia [Unknown]
  - Dyspnoea [Unknown]
  - Cardiac failure [Unknown]
